FAERS Safety Report 6354277-6 (Version None)
Quarter: 2009Q3

REPORT INFORMATION
  Report Type: 
  Country: None (occurrence: None)
  Receive Date: 20090914
  Receipt Date: 20090907
  Transmission Date: 20100115
  Serious: Yes (Other)
  Sender: FDA-Public Use
  Company Number: PHHY2009DE34979

PATIENT
  Sex: Female
  Weight: 65 kg

DRUGS (9)
  1. RASILEZ [Suspect]
     Indication: HYPERTENSION
     Dosage: 0.5 DF, QD
     Route: 048
     Dates: start: 20080801, end: 20090308
  2. RASILEZ [Suspect]
     Dosage: 1 DF, QD
     Route: 048
     Dates: start: 20090309, end: 20090701
  3. RASILEZ [Suspect]
     Dosage: 0.5 DF, QD
     Route: 048
     Dates: start: 20090701
  4. LEVOTHYROXINE SODIUM [Concomitant]
     Indication: HYPOTHYROIDISM
     Dosage: 25 MCG
  5. Q10 [Concomitant]
     Dosage: 30 MG/DAY
  6. ACID FREE [Concomitant]
     Dosage: 500 MG/DAY
  7. BIO-MULTI PLUS [Concomitant]
     Dosage: 0.5 DF, QD
  8. C 1000 [Concomitant]
     Dosage: 0.5 DF, QD
  9. CALCIUM W/MAGNESIUM [Concomitant]
     Dosage: 1 DF, QD

REACTIONS (2)
  - ATRIAL FIBRILLATION [None]
  - TACHYARRHYTHMIA [None]
